FAERS Safety Report 17116015 (Version 1)
Quarter: 2019Q4

REPORT INFORMATION
  Report Type: Spontaneous
  Country: US (occurrence: US)
  Receive Date: 20191205
  Receipt Date: 20191205
  Transmission Date: 20200122
  Serious: Yes (Other)
  Sender: FDA-Public Use
  Company Number: US-PFIZER INC-2019521664

PATIENT
  Sex: Female
  Weight: 2.16 kg

DRUGS (13)
  1. SIROLIMUS. [Suspect]
     Active Substance: SIROLIMUS
     Dosage: 10 MG, DAILY (29W 3D)
     Route: 064
  2. SIROLIMUS. [Suspect]
     Active Substance: SIROLIMUS
     Indication: RHABDOMYOMA
     Dosage: 10 MG, DAILY (28W 3D)
     Route: 064
  3. SIROLIMUS. [Suspect]
     Active Substance: SIROLIMUS
     Dosage: 10 MG, DAILY (28W 6D)
     Route: 064
  4. SIROLIMUS. [Suspect]
     Active Substance: SIROLIMUS
     Dosage: 10 MG, DAILY (32W 2D)
     Route: 064
  5. SIROLIMUS. [Suspect]
     Active Substance: SIROLIMUS
     Dosage: 8 MG, DAILY (33W 2D)
     Route: 064
  6. SIROLIMUS. [Suspect]
     Active Substance: SIROLIMUS
     Dosage: 6 MG, DAILY (35W 6D)
     Route: 064
  7. SIROLIMUS. [Suspect]
     Active Substance: SIROLIMUS
     Dosage: 10 MG, DAILY (30W 1D)
     Route: 064
  8. SIROLIMUS. [Suspect]
     Active Substance: SIROLIMUS
     Dosage: 8 MG, DAILY (34W 2D)
     Route: 064
  9. LYSINE [Suspect]
     Active Substance: LYSINE
     Dosage: 1000 MG, UNK
     Route: 064
  10. SIROLIMUS. [Suspect]
     Active Substance: SIROLIMUS
     Dosage: 6 MG, DAILY (35W 2D)
     Route: 064
  11. SIROLIMUS. [Suspect]
     Active Substance: SIROLIMUS
     Dosage: UNK, DAILY (6-10MG)
     Route: 064
  12. LEVOTHYROXINE SODIUM. [Suspect]
     Active Substance: LEVOTHYROXINE SODIUM
     Dosage: UNK
     Route: 064
  13. SIROLIMUS. [Suspect]
     Active Substance: SIROLIMUS
     Dosage: 10 MG, DAILY (31W 1D)
     Route: 064

REACTIONS (3)
  - Premature baby [Unknown]
  - Foetal growth restriction [Recovered/Resolved]
  - Maternal exposure during pregnancy [Unknown]
